FAERS Safety Report 13533235 (Version 1)
Quarter: 2017Q2

REPORT INFORMATION
  Report Type: Spontaneous
  Country: US (occurrence: US)
  Receive Date: 20170510
  Receipt Date: 20170510
  Transmission Date: 20170830
  Serious: Yes (Hospitalization)
  Sender: FDA-Public Use
  Company Number: US-IMPAX LABORATORIES, INC-2017-IPXL-01257

PATIENT
  Age: 94 Year
  Sex: Male

DRUGS (1)
  1. GLIMEPIRIDE. [Suspect]
     Active Substance: GLIMEPIRIDE
     Indication: DIABETES MELLITUS
     Dosage: UNK
     Route: 065

REACTIONS (6)
  - Altered state of consciousness [Recovering/Resolving]
  - Hydronephrosis [Recovered/Resolved]
  - Disorientation [Recovering/Resolving]
  - Bladder mass [Unknown]
  - Obstructive uropathy [Recovered/Resolved]
  - Overdose [Recovering/Resolving]
